FAERS Safety Report 8545007-8 (Version None)
Quarter: 2012Q3

REPORT INFORMATION
  Report Type: 
  Country: None (occurrence: None)
  Receive Date: 20120727
  Receipt Date: 20120718
  Transmission Date: 20120928
  Serious: Yes (Hospitalization)
  Sender: FDA-Public Use
  Company Number: FR-GLAXOSMITHKLINE-B0815479A

PATIENT
  Age: 56 Year
  Sex: Female

DRUGS (3)
  1. CEFUROXIME [Suspect]
     Indication: PROPHYLAXIS
     Route: 042
     Dates: start: 20110327, end: 20110327
  2. SUFENTANIL CITRATE [Concomitant]
     Indication: INDUCTION OF ANAESTHESIA
     Dates: start: 20110327
  3. PROPOFOL [Concomitant]
     Indication: INDUCTION OF ANAESTHESIA
     Dates: start: 20110327

REACTIONS (1)
  - BRONCHOSPASM [None]
